FAERS Safety Report 14504683 (Version 1)
Quarter: 2018Q1

REPORT INFORMATION
  Report Type: Spontaneous
  Country: PL (occurrence: PL)
  Receive Date: 20180208
  Receipt Date: 20180208
  Transmission Date: 20180509
  Serious: Yes (Other)
  Sender: FDA-Public Use
  Company Number: PL-B.I. PHARMACEUTICALS,INC./RIDGEFIELD-2018-BI-006298

PATIENT
  Age: 62 Year
  Sex: Male
  Weight: 80 kg

DRUGS (4)
  1. PRADAXA [Suspect]
     Active Substance: DABIGATRAN ETEXILATE MESYLATE
     Indication: ATRIAL FIBRILLATION
     Route: 048
  2. NEBILET [Concomitant]
     Active Substance: NEBIVOLOL
     Indication: CARDIAC FAILURE
     Route: 048
     Dates: start: 20140210
  3. VALSACOR [Concomitant]
     Active Substance: VALSARTAN
     Indication: HYPERTENSION
     Route: 065
     Dates: start: 20140424, end: 20180130
  4. ELEVEON [Concomitant]
     Indication: CARDIAC FAILURE
     Route: 048
     Dates: start: 20140424

REACTIONS (4)
  - Erythema [Unknown]
  - Blister [Unknown]
  - Pruritus [Unknown]
  - Rash macular [Unknown]

NARRATIVE: CASE EVENT DATE: 20171201
